FAERS Safety Report 13080284 (Version 2)
Quarter: 2017Q2

REPORT INFORMATION
  Report Type: Spontaneous
  Country: IT (occurrence: IT)
  Receive Date: 20170103
  Receipt Date: 20170601
  Transmission Date: 20170830
  Serious: Yes (Other)
  Sender: FDA-Public Use
  Company Number: IT-GLAXOSMITHKLINE-IT2016GSK192113

PATIENT
  Age: 3 Year
  Sex: Male
  Weight: 15 kg

DRUGS (4)
  1. CERCHIO [Concomitant]
     Dosage: 10 UNK, UNK
     Dates: start: 20160609, end: 20160609
  2. CETIRIZINE [Concomitant]
     Active Substance: CETIRIZINE HYDROCHLORIDE
     Dosage: UNK
     Dates: start: 20160609, end: 20160611
  3. VOLTAREN [Suspect]
     Active Substance: DICLOFENAC SODIUM
     Indication: PAIN IN EXTREMITY
     Dosage: 2 ML, QD
     Route: 061
     Dates: start: 20160608, end: 20160608
  4. IBUPROFEN. [Concomitant]
     Active Substance: IBUPROFEN
     Dosage: UNK
     Dates: start: 20160608, end: 20160608

REACTIONS (3)
  - Henoch-Schonlein purpura [Unknown]
  - Rash [Recovered/Resolved with Sequelae]
  - Testicular swelling [Recovered/Resolved with Sequelae]

NARRATIVE: CASE EVENT DATE: 20160609
